FAERS Safety Report 20307992 (Version 1)
Quarter: 2022Q1

REPORT INFORMATION
  Report Type: Spontaneous
  Country: US (occurrence: US)
  Receive Date: 20220107
  Receipt Date: 20220107
  Transmission Date: 20220423
  Serious: No
  Sender: FDA-Public Use
  Company Number: US-ALLERGAN-2138142US

PATIENT
  Age: 65 Year
  Sex: Male

DRUGS (4)
  1. QULIPTA [Suspect]
     Active Substance: ATOGEPANT
     Indication: Cluster headache
     Dosage: 60 MG, QD
     Dates: start: 20211025, end: 20211027
  2. QULIPTA [Suspect]
     Active Substance: ATOGEPANT
     Dosage: 60 MG, QD
     Dates: start: 20211102
  3. PREDNISONE [Concomitant]
     Active Substance: PREDNISONE
     Indication: Cluster headache
     Dosage: UNK, QID
  4. LIPITOR [Concomitant]
     Active Substance: ATORVASTATIN CALCIUM
     Indication: Blood cholesterol increased

REACTIONS (1)
  - Headache [Recovered/Resolved]

NARRATIVE: CASE EVENT DATE: 20211027
